FAERS Safety Report 17251819 (Version 1)
Quarter: 2020Q1

REPORT INFORMATION
  Report Type: Spontaneous
  Country: US (occurrence: US)
  Receive Date: 20200109
  Receipt Date: 20200109
  Transmission Date: 20200409
  Serious: Yes (Death, Hospitalization)
  Sender: FDA-Public Use
  Company Number: US-BAYER-2020-002738

PATIENT
  Age: 67 Year
  Sex: Male

DRUGS (1)
  1. STIVARGA [Suspect]
     Active Substance: REGORAFENIB
     Indication: COLON CANCER METASTATIC
     Dosage: 40 MG
     Dates: start: 20190626, end: 20190710

REACTIONS (17)
  - Colon cancer [Fatal]
  - Asthenia [Fatal]
  - Off label use [None]
  - Weight decreased [Fatal]
  - Jaundice [Fatal]
  - Hepatic enzyme increased [Fatal]
  - Haemorrhage [Fatal]
  - Urine output decreased [Fatal]
  - Swelling [Fatal]
  - Myocardial ischaemia [Fatal]
  - Chromaturia [Fatal]
  - Dysphonia [Fatal]
  - Nausea [Fatal]
  - Abdominal pain upper [Fatal]
  - Faeces discoloured [Fatal]
  - Blister [Fatal]
  - Hypertension [Fatal]

NARRATIVE: CASE EVENT DATE: 20190626
